FAERS Safety Report 9924334 (Version 2)
Quarter: 2016Q3

REPORT INFORMATION
  Report Type: Report from Study
  Country: CA (occurrence: CA)
  Receive Date: 20140226
  Receipt Date: 20160825
  Transmission Date: 20161109
  Serious: Yes (Other)
  Sender: FDA-Public Use
  Company Number: CA-ROCHE-1353601

PATIENT
  Age: 58 Year
  Sex: Female
  Weight: 74.8 kg

DRUGS (24)
  1. BUTRANS [Concomitant]
     Active Substance: BUPRENORPHINE
     Route: 065
  2. LOSEC [Concomitant]
     Active Substance: OMEPRAZOLE
  3. PLO GEL [Concomitant]
     Active Substance: LECITHIN\POLOXAMER 407
  4. CRESTOR [Concomitant]
     Active Substance: ROSUVASTATIN CALCIUM
  5. PREDNISONE. [Concomitant]
     Active Substance: PREDNISONE
  6. PROGESTERONE. [Concomitant]
     Active Substance: PROGESTERONE
  7. MACROBID [Concomitant]
     Active Substance: NITROFURANTOIN\NITROFURANTOIN MONOHYDRATE
     Route: 065
  8. AMOXIL [Concomitant]
     Active Substance: AMOXICILLIN
  9. ESTROGEL [Concomitant]
     Active Substance: ESTRADIOL
  10. TOFACITINIB [Concomitant]
     Active Substance: TOFACITINIB
  11. LYRICA [Concomitant]
     Active Substance: PREGABALIN
  12. DILAUDID [Concomitant]
     Active Substance: HYDROMORPHONE HYDROCHLORIDE
  13. PROMETRIUM [Concomitant]
     Active Substance: PROGESTERONE
  14. TYLENOL EXTRA STRENGTH [Concomitant]
     Active Substance: ACETAMINOPHEN
  15. SYMBICORT [Concomitant]
     Active Substance: BUDESONIDE\FORMOTEROL FUMARATE DIHYDRATE
  16. RITUXAN [Suspect]
     Active Substance: RITUXIMAB
     Indication: RHEUMATOID ARTHRITIS
     Route: 042
     Dates: start: 20130304, end: 20141013
  17. METHOTREXATE. [Concomitant]
     Active Substance: METHOTREXATE
  18. ONDANSETRON [Concomitant]
     Active Substance: ONDANSETRON
  19. DICLOFENAC [Concomitant]
     Active Substance: DICLOFENAC
  20. FOLIC ACID. [Concomitant]
     Active Substance: FOLIC ACID
  21. AMITRIPTYLINE [Concomitant]
     Active Substance: AMITRIPTYLINE
     Route: 065
  22. ELIQUIS [Concomitant]
     Active Substance: APIXABAN
  23. GRAVOL [Concomitant]
     Active Substance: DIMENHYDRINATE
  24. DENOSUMAB [Concomitant]
     Active Substance: DENOSUMAB

REACTIONS (4)
  - Cartilage injury [Unknown]
  - Weight increased [Not Recovered/Not Resolved]
  - Osteopenia [Unknown]
  - Cellulitis [Recovered/Resolved]

NARRATIVE: CASE EVENT DATE: 201604
